FAERS Safety Report 20538350 (Version 1)
Quarter: 2022Q1

REPORT INFORMATION
  Report Type: Spontaneous
  Country: US (occurrence: None)
  Receive Date: 20220302
  Receipt Date: 20220302
  Transmission Date: 20220423
  Serious: Yes (Hospitalization)
  Sender: FDA-Public Use
  Company Number: None

PATIENT
  Age: 52 Year
  Sex: Female

DRUGS (3)
  1. METHOTREXATE [Suspect]
     Active Substance: METHOTREXATE
     Indication: Neoplasm malignant
     Dates: start: 20210119
  2. METHOTREXATE [Suspect]
     Active Substance: METHOTREXATE
     Indication: Product used for unknown indication
  3. PACLITAXEL [Suspect]
     Active Substance: PACLITAXEL

REACTIONS (8)
  - Leukopenia [None]
  - Anaemia [None]
  - Drug eruption [None]
  - Toxicity to various agents [None]
  - Rash [None]
  - Skin ulcer [None]
  - Psoriasis [None]
  - Mucosal inflammation [None]

NARRATIVE: CASE EVENT DATE: 20210119
